FAERS Safety Report 14635039 (Version 1)
Quarter: 2018Q1

REPORT INFORMATION
  Report Type: Spontaneous
  Country: US (occurrence: US)
  Receive Date: 20180313
  Receipt Date: 20180313
  Transmission Date: 20180509
  Serious: No
  Sender: FDA-Public Use
  Company Number: None

PATIENT
  Age: 80 Year
  Sex: Female

DRUGS (1)
  1. ADCIRCA [Suspect]
     Active Substance: TADALAFIL
     Route: 048

REACTIONS (4)
  - Rash [None]
  - Cataract [None]
  - Skin discolouration [None]
  - Scratch [None]

NARRATIVE: CASE EVENT DATE: 20180313
